FAERS Safety Report 24533864 (Version 1)
Quarter: 2024Q4

REPORT INFORMATION
  Report Type: Spontaneous
  Country: GR (occurrence: GR)
  Receive Date: 20241022
  Receipt Date: 20241022
  Transmission Date: 20250114
  Serious: Yes (Hospitalization, Other)
  Sender: CHEPLAPHARM
  Company Number: None

PATIENT
  Age: 83 Year
  Sex: Male

DRUGS (2)
  1. CAPECITABINE [Interacting]
     Active Substance: CAPECITABINE
     Indication: Adenocarcinoma of colon
     Dosage: 1250 MG X 2 PER DAY?DAILY DOSE: 2500 MILLIGRAM
     Dates: start: 202011
  2. WARFARIN [Interacting]
     Active Substance: WARFARIN
     Indication: Atrial fibrillation

REACTIONS (5)
  - Acute kidney injury [Not Recovered/Not Resolved]
  - Nephropathy toxic [Recovered/Resolved with Sequelae]
  - Abdominal wall haematoma [Recovered/Resolved]
  - Labelled drug-drug interaction issue [Unknown]
  - Labelled drug-disease interaction issue [Unknown]
